FAERS Safety Report 6247906-9 (Version None)
Quarter: 2009Q2

REPORT INFORMATION
  Report Type: 
  Country: None (occurrence: None)
  Receive Date: 20090626
  Receipt Date: 20090615
  Transmission Date: 20091009
  Serious: Yes (Other)
  Sender: FDA-Public Use
  Company Number: US-GENENTECH-285542

PATIENT

DRUGS (4)
  1. HERCEPTIN [Suspect]
     Indication: BREAST CANCER METASTATIC
     Dosage: 8 MG/KG, UNK
     Route: 042
  2. HERCEPTIN [Suspect]
     Dosage: 4 MG/KG, DAYS 1+15
     Route: 042
  3. DOXORUBICIN HCL [Suspect]
     Indication: BREAST CANCER METASTATIC
     Dosage: 30 MG/M2, UNK
     Route: 042
  4. CARBOPLATIN [Suspect]
     Indication: BREAST CANCER METASTATIC
     Dosage: 5 AUC, UNK
     Route: 042

REACTIONS (5)
  - ANAEMIA [None]
  - FATIGUE [None]
  - LEUKOPENIA [None]
  - NEUTROPENIA [None]
  - THROMBOCYTOPENIA [None]
